FAERS Safety Report 24105003 (Version 1)
Quarter: 2024Q3

REPORT INFORMATION
  Report Type: Report from Study
  Country: MX (occurrence: MX)
  Receive Date: 20240717
  Receipt Date: 20240717
  Transmission Date: 20241017
  Serious: Yes (Other)
  Sender: NOVARTIS
  Company Number: MX-002147023-NVSC2024MX137552

PATIENT
  Age: 51 Year
  Sex: Female
  Weight: 103 kg

DRUGS (10)
  1. TASIGNA [Suspect]
     Active Substance: NILOTINIB
     Indication: Chronic myeloid leukaemia
     Dosage: 800 MG, QD
     Route: 065
     Dates: start: 202403
  2. TASIGNA [Suspect]
     Active Substance: NILOTINIB
     Dosage: 1 DOSAGE FORM, THE FIRST WEEK
     Route: 065
  3. TASIGNA [Suspect]
     Active Substance: NILOTINIB
     Dosage: 2 DOSAGE FORM, THE SECOND WEEK
     Route: 065
  4. TASIGNA [Suspect]
     Active Substance: NILOTINIB
     Dosage: 3 DOSAGE FORM, THE THIRD WEEK
     Route: 065
  5. TASIGNA [Suspect]
     Active Substance: NILOTINIB
     Dosage: 400 MG, QD (2 OF 200 MG)
     Route: 048
  6. TASIGNA [Suspect]
     Active Substance: NILOTINIB
     Dosage: 2 DOSAGE FORM, Q12H
     Route: 048
     Dates: start: 202403, end: 202404
  7. TASIGNA [Suspect]
     Active Substance: NILOTINIB
     Dosage: 1 DOSAGE FORM, IN THE MORNING
     Route: 048
     Dates: start: 202404, end: 202405
  8. TASIGNA [Suspect]
     Active Substance: NILOTINIB
     Dosage: 2 DOSAGE FORM, IN THE MORNING
     Route: 048
     Dates: start: 202405, end: 202405
  9. TASIGNA [Suspect]
     Active Substance: NILOTINIB
     Dosage: IN THE MORNING AND AT NIGHT
     Route: 048
     Dates: start: 202405, end: 202405
  10. TASIGNA [Suspect]
     Active Substance: NILOTINIB
     Dosage: 2 DOSAGE FORM, IN THE MORNING
     Route: 048
     Dates: start: 202405

REACTIONS (12)
  - Hepatitis [Not Recovered/Not Resolved]
  - Rash [Recovering/Resolving]
  - Headache [Recovered/Resolved]
  - Eye pain [Recovered/Resolved]
  - Abdominal pain upper [Recovered/Resolved]
  - Discomfort [Unknown]
  - Urticaria [Recovered/Resolved]
  - Abdominal pain upper [Recovered/Resolved]
  - Headache [Recovered/Resolved]
  - Eye pain [Recovered/Resolved]
  - Urticaria [Recovered/Resolved]
  - Off label use [Not Recovered/Not Resolved]

NARRATIVE: CASE EVENT DATE: 20240301
